FAERS Safety Report 10192057 (Version 2)
Quarter: 2014Q3

REPORT INFORMATION
  Report Type: Spontaneous
  Country: JP (occurrence: JP)
  Receive Date: 20140523
  Receipt Date: 20140701
  Transmission Date: 20150326
  Serious: Yes (Hospitalization, Other)
  Sender: FDA-Public Use
  Company Number: JP-PFIZER INC-2014136767

PATIENT
  Age: 89 Year
  Sex: Female

DRUGS (8)
  1. IFENPRODIL [Concomitant]
     Active Substance: IFENPRODIL
     Dosage: 40 MG, 1X/DAY
  2. VESICARE [Concomitant]
     Active Substance: SOLIFENACIN SUCCINATE
     Dosage: 10 MG, 1X/DAY
  3. SHINLUCK [Concomitant]
     Dosage: 7.5 MG, 1X/DAY
  4. SENNOSIDES [Concomitant]
     Active Substance: SENNOSIDES
     Dosage: 72 MG, 1X/DAY
  5. LYRICA [Suspect]
     Active Substance: PREGABALIN
     Dosage: 150 MG, 1X/DAY
     Route: 048
  6. LUDIOMIL [Concomitant]
     Active Substance: MAPROTILINE HYDROCHLORIDE
     Dosage: 20 MG, 1X/DAY
  7. SG [Concomitant]
     Dosage: 1 G, 1X/DAY
  8. BENIDIPINE HYDROCHLORIDE [Concomitant]
     Active Substance: BENIDIPINE HYDROCHLORIDE
     Dosage: 4 MG, 1X/DAY

REACTIONS (11)
  - Neck pain [Unknown]
  - Abasia [Unknown]
  - Altered state of consciousness [Recovered/Resolved]
  - Tremor [Recovered/Resolved]
  - Hypertension [Unknown]
  - Anaemia [Unknown]
  - Back pain [Unknown]
  - Dyskinesia [Recovered/Resolved]
  - Myoclonus [Recovered/Resolved]
  - Dizziness [Unknown]
  - Vomiting [Unknown]
